FAERS Safety Report 18940341 (Version 4)
Quarter: 2021Q2

REPORT INFORMATION
  Report Type: Spontaneous
  Country: JP (occurrence: JP)
  Receive Date: 20210225
  Receipt Date: 20210505
  Transmission Date: 20210717
  Serious: Yes (Other)
  Sender: FDA-Public Use
  Company Number: JP-TEVA-2021-JP-1884098

PATIENT
  Age: 64 Year
  Sex: Male
  Weight: 57.4 kg

DRUGS (15)
  1. LIVALO [Concomitant]
     Active Substance: PITAVASTATIN CALCIUM
     Dates: start: 20180721
  2. MENESIT [Concomitant]
     Active Substance: CARBIDOPA\LEVODOPA
     Dates: start: 20190216, end: 20190316
  3. REMINYL [Suspect]
     Active Substance: GALANTAMINE
     Indication: DEMENTIA ALZHEIMER^S TYPE
     Route: 048
  4. AZILECT [Suspect]
     Active Substance: RASAGILINE MESYLATE
     Indication: PARKINSONIAN GAIT
     Dosage: .5 MILLIGRAM DAILY;
     Route: 048
     Dates: start: 20210109, end: 20210203
  5. REMINYL [Suspect]
     Active Substance: GALANTAMINE
     Dosage: 16 MILLIGRAM DAILY;
     Route: 048
     Dates: start: 20180721, end: 20190412
  6. REMINYL [Suspect]
     Active Substance: GALANTAMINE
     Dosage: DOSE UNKNOWN
     Route: 048
  7. EXELON [Concomitant]
     Active Substance: RIVASTIGMINE TARTRATE
     Dates: start: 20190413, end: 20200215
  8. NEUPRO [Concomitant]
     Active Substance: ROTIGOTINE
     Dates: start: 20191116, end: 20200617
  9. CRESTOR [Concomitant]
     Active Substance: ROSUVASTATIN CALCIUM
  10. ARICEPT [Concomitant]
     Active Substance: DONEPEZIL HYDROCHLORIDE
  11. MEMANTINE HYDROCHLORIDE. [Concomitant]
     Active Substance: MEMANTINE HYDROCHLORIDE
     Dates: start: 20191116, end: 20200617
  12. PLAVIX [Concomitant]
     Active Substance: CLOPIDOGREL BISULFATE
  13. METHYCOBAL [Concomitant]
     Active Substance: METHYLCOBALAMIN
     Dates: start: 20200617, end: 20201107
  14. AZILECT [Suspect]
     Active Substance: RASAGILINE MESYLATE
     Indication: PARKINSONISM
     Dosage: 1 MILLIGRAM DAILY;
     Route: 048
     Dates: start: 20190928, end: 20200617
  15. NEXIUM [Concomitant]
     Active Substance: ESOMEPRAZOLE MAGNESIUM

REACTIONS (4)
  - Vascular parkinsonism [Not Recovered/Not Resolved]
  - Product use in unapproved indication [Unknown]
  - Dementia Alzheimer^s type [Not Recovered/Not Resolved]
  - Loss of personal independence in daily activities [Recovered/Resolved with Sequelae]

NARRATIVE: CASE EVENT DATE: 20180721
